FAERS Safety Report 6425289-9 (Version None)
Quarter: 2009Q4

REPORT INFORMATION
  Report Type: 
  Country: None (occurrence: None)
  Receive Date: 20091102
  Receipt Date: 20091102
  Transmission Date: 20100525
  Serious: Yes (Life-Threatening, Hospitalization)
  Sender: FDA-Public Use
  Company Number: None

PATIENT
  Sex: Female
  Weight: 67.5 kg

DRUGS (4)
  1. RITUXAN [Suspect]
     Indication: HEART TRANSPLANT REJECTION
     Dosage: 650 MG ONE TIME ONLY IV
     Route: 042
     Dates: start: 20091013
  2. RITUXAN [Suspect]
  3. RITUXAN [Suspect]
  4. RITUXAN [Suspect]

REACTIONS (7)
  - BRADYCARDIA [None]
  - CARDIO-RESPIRATORY ARREST [None]
  - DIZZINESS [None]
  - NAUSEA [None]
  - PULSE PRESSURE DECREASED [None]
  - SYNCOPE [None]
  - VOMITING [None]
